FAERS Safety Report 23880316 (Version 2)
Quarter: 2024Q4

REPORT INFORMATION
  Report Type: Report from Study
  Country: US (occurrence: US)
  Receive Date: 20240521
  Receipt Date: 20241106
  Transmission Date: 20250114
  Serious: Yes (Other)
  Sender: ABBVIE
  Company Number: US-ABBVIE-5766707

PATIENT
  Age: 63 Year
  Sex: Female
  Weight: 64 kg

DRUGS (1)
  1. RINVOQ [Suspect]
     Active Substance: UPADACITINIB
     Indication: Crohn^s disease
     Route: 048
     Dates: start: 20231103

REACTIONS (4)
  - Squamous cell carcinoma [Not Recovered/Not Resolved]
  - Rash vesicular [Unknown]
  - Invasive ductal breast carcinoma [Unknown]
  - Breast hyperplasia [Unknown]

NARRATIVE: CASE EVENT DATE: 20231222
